FAERS Safety Report 5084976-8 (Version None)
Quarter: 2006Q3

REPORT INFORMATION
  Report Type: 
  Country: None (occurrence: None)
  Receive Date: 20060814
  Receipt Date: 20060726
  Transmission Date: 20061208
  Serious: Yes (Hospitalization, Other)
  Sender: FDA-Public Use
  Company Number: US200608000916

PATIENT
  Sex: Male
  Weight: 113.4 kg

DRUGS (1)
  1. OLANZAPINE [Suspect]
     Dosage: 5 MG ORAL
     Route: 048
     Dates: start: 20021001

REACTIONS (2)
  - DIABETES MELLITUS [None]
  - HEPATITIS VIRAL [None]
